FAERS Safety Report 24031587 (Version 2)
Quarter: 2024Q3

REPORT INFORMATION
  Report Type: Spontaneous
  Country: DE (occurrence: DE)
  Receive Date: 20240629
  Receipt Date: 20240730
  Transmission Date: 20241016
  Serious: Yes (Hospitalization, Other)
  Sender: AUROBINDO
  Company Number: DE-ACTAVIS-2011A-01823

PATIENT
  Age: 17 Year
  Sex: Male
  Weight: 68 kg

DRUGS (9)
  1. DICLOFENAC [Suspect]
     Active Substance: DICLOFENAC
     Indication: Procedural pain
     Dosage: 1 DOSAGE FORM, 3 TIMES A DAY
     Route: 065
  2. DICLOFENAC [Suspect]
     Active Substance: DICLOFENAC
     Indication: Analgesic therapy
  3. DICLOFENAC [Suspect]
     Active Substance: DICLOFENAC
     Indication: Femur fracture
  4. NALOXONE HYDROCHLORIDE\TILIDINE HYDROCHLORIDE [Suspect]
     Active Substance: NALOXONE HYDROCHLORIDE\TILIDINE HYDROCHLORIDE
     Indication: Procedural pain
     Dosage: 1 DOSAGE FORM, TWO TIMES A DAY
     Route: 065
  5. NALOXONE HYDROCHLORIDE\TILIDINE HYDROCHLORIDE [Suspect]
     Active Substance: NALOXONE HYDROCHLORIDE\TILIDINE HYDROCHLORIDE
     Indication: Femur fracture
  6. NOVALGIN (METAMIZOLE SODIUM) [Suspect]
     Active Substance: METAMIZOLE SODIUM
     Indication: Analgesic therapy
     Dosage: 4 X 30 DROPS
     Route: 065
  7. NOVALGIN (METAMIZOLE SODIUM) [Suspect]
     Active Substance: METAMIZOLE SODIUM
     Indication: Procedural pain
  8. NOVALGIN (METAMIZOLE SODIUM) [Suspect]
     Active Substance: METAMIZOLE SODIUM
     Indication: Femur fracture
  9. PANTOPRAZOLE [Concomitant]
     Active Substance: PANTOPRAZOLE
     Indication: Prophylaxis
     Dosage: UNK
     Route: 065

REACTIONS (12)
  - Dysphagia [Unknown]
  - Agranulocytosis [Recovered/Resolved]
  - Pyrexia [Recovered/Resolved]
  - Chills [Recovered/Resolved]
  - Odynophagia [Recovered/Resolved]
  - Neutropenia [Recovered/Resolved]
  - Depression [Unknown]
  - Febrile infection [Recovered/Resolved]
  - Splenomegaly [Unknown]
  - Alanine aminotransferase increased [Unknown]
  - Fatigue [Recovering/Resolving]
  - Gamma-glutamyltransferase increased [Unknown]
